FAERS Safety Report 8419840-7 (Version None)
Quarter: 2012Q2

REPORT INFORMATION
  Report Type: 
  Country: None (occurrence: None)
  Receive Date: 20120607
  Receipt Date: 20120605
  Transmission Date: 20120825
  Serious: Yes (Other)
  Sender: FDA-Public Use
  Company Number: US-PURDUE-USA-2012-0086816

PATIENT
  Sex: Female
  Weight: 65.306 kg

DRUGS (1)
  1. OXYCONTIN [Suspect]
     Indication: PAIN
     Dosage: 30 MG, Q8H
     Route: 048

REACTIONS (1)
  - HERPES ZOSTER [None]
